FAERS Safety Report 6294232-8 (Version None)
Quarter: 2009Q3

REPORT INFORMATION
  Report Type: 
  Country: None (occurrence: None)
  Receive Date: 20090803
  Receipt Date: 20090326
  Transmission Date: 20100115
  Serious: No
  Sender: FDA-Public Use
  Company Number: A0775611A

PATIENT
  Age: 41 Year
  Sex: Male

DRUGS (1)
  1. NICORETTE [Suspect]
     Dates: start: 20090312, end: 20090323

REACTIONS (4)
  - GINGIVAL BLEEDING [None]
  - GINGIVAL SWELLING [None]
  - OEDEMA MOUTH [None]
  - OROPHARYNGEAL BLISTERING [None]
